FAERS Safety Report 8260268-0 (Version None)
Quarter: 2012Q2

REPORT INFORMATION
  Report Type: 
  Country: None (occurrence: None)
  Receive Date: 20120404
  Receipt Date: 20120321
  Transmission Date: 20120825
  Serious: Yes (Other)
  Sender: FDA-Public Use
  Company Number: US-ROCHE-1051058

PATIENT
  Age: 62 Year
  Sex: Male

DRUGS (5)
  1. AVASTIN [Suspect]
     Indication: COLORECTAL CANCER METASTATIC
     Route: 042
     Dates: start: 20120222
  2. LEUCOVORIN CALCIUM [Concomitant]
     Indication: COLORECTAL CANCER METASTATIC
  3. AVASTIN [Suspect]
     Dates: start: 20120307
  4. IRINOTECAN HCL [Concomitant]
     Indication: COLORECTAL CANCER METASTATIC
  5. FLUOROURACIL [Concomitant]
     Indication: COLORECTAL CANCER METASTATIC

REACTIONS (2)
  - COLORECTAL CANCER METASTATIC [None]
  - SMALL INTESTINAL OBSTRUCTION [None]
